FAERS Safety Report 16555872 (Version 7)
Quarter: 2021Q2

REPORT INFORMATION
  Report Type: Report from Study
  Country: US (occurrence: US)
  Receive Date: 20190710
  Receipt Date: 20210422
  Transmission Date: 20210716
  Serious: Yes (Death, Life-Threatening, Hospitalization)
  Sender: FDA-Public Use
  Company Number: US-EISAI MEDICAL RESEARCH-EC-2019-058936

PATIENT
  Age: 73 Year
  Sex: Female
  Weight: 78.38 kg

DRUGS (10)
  1. PEMBROLIZUMAB. [Suspect]
     Active Substance: PEMBROLIZUMAB
     Indication: NON-SMALL CELL LUNG CANCER
     Route: 041
     Dates: start: 20190617, end: 20190617
  2. MIRALAX [Concomitant]
     Active Substance: POLYETHYLENE GLYCOL 3350
     Dates: start: 20190623
  3. ZYRTEC [Concomitant]
     Active Substance: CETIRIZINE HYDROCHLORIDE
     Dates: start: 20190622
  4. ATORVASTATIN [Concomitant]
     Active Substance: ATORVASTATIN
     Dates: start: 199901
  5. GLIMEPIRIDE. [Concomitant]
     Active Substance: GLIMEPIRIDE
     Dates: start: 201601
  6. ALBUTEROL SULFATE. [Concomitant]
     Active Substance: ALBUTEROL SULFATE
     Dates: start: 201601
  7. AMLODIPINE [Concomitant]
     Active Substance: AMLODIPINE BESYLATE
     Dates: start: 201601
  8. IBUPROFEN. [Concomitant]
     Active Substance: IBUPROFEN
     Dates: start: 201904
  9. LENVATINIB [Suspect]
     Active Substance: LENVATINIB
     Indication: NON-SMALL CELL LUNG CANCER
     Route: 048
     Dates: start: 20190617, end: 20190703
  10. CENTRUM SILVER ADULTS 50 PLUS [Concomitant]
     Active Substance: MINERALS\VITAMINS
     Dates: start: 199901

REACTIONS (1)
  - Haemorrhagic stroke [Fatal]

NARRATIVE: CASE EVENT DATE: 20190704
